FAERS Safety Report 8260939-6 (Version None)
Quarter: 2012Q2

REPORT INFORMATION
  Report Type: 
  Country: None (occurrence: None)
  Receive Date: 20120402
  Receipt Date: 20120306
  Transmission Date: 20120825
  Serious: Yes (Life-Threatening, Hospitalization)
  Sender: FDA-Public Use
  Company Number: 54973 AE #806

PATIENT
  Age: 21 Year
  Sex: Male

DRUGS (1)
  1. HYLAND'S CALMS FORTE [Suspect]
     Indication: INSOMNIA
     Dosage: A LOT OF CALMS FORTE

REACTIONS (7)
  - HALLUCINATION [None]
  - DREAMY STATE [None]
  - SOMNOLENCE [None]
  - ACCIDENTAL DRUG INTAKE BY CHILD [None]
  - MALAISE [None]
  - FEELING ABNORMAL [None]
  - ABNORMAL BEHAVIOUR [None]
